FAERS Safety Report 23248319 (Version 4)
Quarter: 2024Q1

REPORT INFORMATION
  Report Type: Report from Study
  Country: US (occurrence: US)
  Receive Date: 20231130
  Receipt Date: 20240323
  Transmission Date: 20240409
  Serious: Yes (Hospitalization, Other)
  Sender: FDA-Public Use
  Company Number: US-ABBVIE-5516781

PATIENT
  Sex: Male
  Weight: 108 kg

DRUGS (4)
  1. RINVOQ [Suspect]
     Active Substance: UPADACITINIB
     Indication: Colitis ulcerative
     Dosage: FORM STRENGTH- 15MG
     Route: 048
     Dates: start: 20230311
  2. RINVOQ [Suspect]
     Active Substance: UPADACITINIB
     Indication: Colitis ulcerative
     Dosage: FORM STRENGTH: 15 MILLIGRAM
     Route: 048
     Dates: start: 20231027, end: 20231127
  3. RINVOQ [Suspect]
     Active Substance: UPADACITINIB
     Indication: Colitis ulcerative
     Route: 048
  4. VANCOMYCIN [Suspect]
     Active Substance: VANCOMYCIN
     Indication: Pain in extremity
     Route: 042

REACTIONS (7)
  - Pharyngeal swelling [Recovered/Resolved]
  - Osteomyelitis [Not Recovered/Not Resolved]
  - Throat tightness [Recovered/Resolved]
  - Cellulitis [Recovered/Resolved]
  - Anaphylactic shock [Recovered/Resolved]
  - Drug hypersensitivity [Unknown]
  - Anaphylactic reaction [Recovered/Resolved]

NARRATIVE: CASE EVENT DATE: 20230101
